FAERS Safety Report 7331790-6 (Version None)
Quarter: 2011Q1

REPORT INFORMATION
  Report Type: 
  Country: None (occurrence: None)
  Receive Date: 20110304
  Receipt Date: 20081209
  Transmission Date: 20110831
  Serious: Yes (Other)
  Sender: FDA-Public Use
  Company Number: US-PFIZER INC-2008153168

PATIENT
  Sex: Female

DRUGS (2)
  1. DILANTIN [Suspect]
     Indication: CONVULSION
  2. DILANTIN [Suspect]

REACTIONS (2)
  - ANTICONVULSANT DRUG LEVEL ABNORMAL [None]
  - CONVULSION [None]
